FAERS Safety Report 7948550-5 (Version None)
Quarter: 2011Q4

REPORT INFORMATION
  Report Type: 
  Country: None (occurrence: None)
  Receive Date: 20111128
  Receipt Date: 20111128
  Transmission Date: 20120403
  Serious: Yes (Hospitalization)
  Sender: FDA-Public Use
  Company Number: None

PATIENT
  Sex: Male
  Weight: 61.4 kg

DRUGS (8)
  1. TEMOZOLOMIDE [Suspect]
     Dosage: 1700 MG
  2. METFORMIN HCL [Concomitant]
  3. FLOMAX [Concomitant]
  4. WARFARIN SODIUM [Concomitant]
  5. LAMICTAL [Concomitant]
  6. ZOCOR [Concomitant]
  7. KAY CIEL DURA-TABS [Concomitant]
  8. KEPPRA [Suspect]

REACTIONS (3)
  - CONVULSION [None]
  - CONFUSIONAL STATE [None]
  - PANCYTOPENIA [None]
